FAERS Safety Report 7470149-8 (Version None)
Quarter: 2011Q2

REPORT INFORMATION
  Report Type: 
  Country: None (occurrence: None)
  Receive Date: 20110510
  Receipt Date: 20110302
  Transmission Date: 20111010
  Serious: Yes (Other)
  Sender: FDA-Public Use
  Company Number: B0704106A

PATIENT
  Sex: Male
  Weight: 70 kg

DRUGS (1)
  1. ALKERAN [Suspect]
     Indication: STEM CELL TRANSPLANT
     Dosage: 100MGM2 PER DAY
     Route: 042
     Dates: start: 20100202, end: 20100203

REACTIONS (1)
  - FEBRILE NEUTROPENIA [None]
